FAERS Safety Report 8811094 (Version 1)
Quarter: 2012Q4

REPORT INFORMATION
  Report Type: Spontaneous
  Country: DK (occurrence: None)
  Receive Date: 20120921
  Receipt Date: 20120921
  Transmission Date: 20130627
  Serious: Yes (Death)
  Sender: FDA-Public Use
  Company Number: 2012MA011437

PATIENT
  Age: 35 Year
  Sex: Male

DRUGS (13)
  1. DIAZEPAM [Suspect]
  2. OXAZEPAM [Suspect]
  3. TEMAZEPAM [Suspect]
  4. CODEINE [Suspect]
  5. NITRAZEPAM [Suspect]
  6. PEGASYS [Suspect]
  7. BUSCOPAN [Concomitant]
  8. CELEXA [Concomitant]
  9. ENSURE PLUS [Concomitant]
  10. NEURONTIN [Concomitant]
  11. RITALIN [Concomitant]
  12. SEROQUEL [Concomitant]
  13. TYLENOL [Concomitant]

REACTIONS (5)
  - Overdose [None]
  - Anxiety [None]
  - Depression [None]
  - Hypersensitivity [None]
  - Completed suicide [None]
